FAERS Safety Report 20097175 (Version 3)
Quarter: 2023Q1

REPORT INFORMATION
  Report Type: Other
  Country: US (occurrence: None)
  Receive Date: 20211122
  Receipt Date: 20230124
  Transmission Date: 20230418
  Serious: Yes (Hospitalization, Other)
  Sender: FDA-Public Use
  Company Number: US-ROCHE-2956717

PATIENT
  Age: 63 Year
  Sex: Male
  Weight: 90.800 kg

DRUGS (9)
  1. OCREVUS [Suspect]
     Active Substance: OCRELIZUMAB
     Indication: Progressive multiple sclerosis
     Dosage: 23/APR/2021, 03/MAY/2021, 15/JUN/2021, JUL/2021, 15/DEC/2021, 15/JUL/2022, 26/DEC/2022
     Route: 042
     Dates: start: 20210419
  2. OCREVUS [Suspect]
     Active Substance: OCRELIZUMAB
     Indication: Relapsing multiple sclerosis
  3. LOSARTAN [Concomitant]
     Active Substance: LOSARTAN
     Indication: Blood pressure measurement
     Route: 048
  4. HYDROCHLOROTHIAZIDE [Concomitant]
     Active Substance: HYDROCHLOROTHIAZIDE
     Route: 048
  5. BACLOFEN [Concomitant]
     Active Substance: BACLOFEN
     Indication: Dyskinesia
     Dosage: TAKES 0.5 TABLET EVERY NIGHT
     Dates: start: 2021
  6. BACLOFEN [Concomitant]
     Active Substance: BACLOFEN
     Indication: Dyskinesia
  7. VITAMINS [Concomitant]
     Active Substance: VITAMINS
     Dosage: ONE A DAY TO ONE EVERY OTHER DAY
  8. VITAMIN D3 [Concomitant]
     Active Substance: CHOLECALCIFEROL
     Route: 048
  9. FISH OIL [Concomitant]
     Active Substance: FISH OIL
     Dosage: 300 UNIT NOT REPORTED
     Route: 048

REACTIONS (5)
  - Sepsis [Recovered/Resolved]
  - Urinary tract infection [Recovered/Resolved]
  - Blindness [Unknown]
  - Escherichia urinary tract infection [Not Recovered/Not Resolved]
  - Off label use [Unknown]

NARRATIVE: CASE EVENT DATE: 20210501
